FAERS Safety Report 6576894-0 (Version None)
Quarter: 2010Q1

REPORT INFORMATION
  Report Type: 
  Country: None (occurrence: None)
  Receive Date: 20100210
  Receipt Date: 20100210
  Transmission Date: 20100710
  Serious: No
  Sender: FDA-Public Use
  Company Number: B0598903A

PATIENT
  Sex: Female

DRUGS (7)
  1. PAXIL [Suspect]
     Indication: DEPRESSION
     Dosage: 10MG PER DAY
     Route: 048
     Dates: start: 20080901, end: 20081218
  2. PAXIL [Suspect]
     Dosage: 20MG PER DAY
     Route: 048
     Dates: start: 20081219, end: 20090115
  3. PAXIL [Suspect]
     Dosage: 30MG PER DAY
     Route: 048
     Dates: start: 20090116
  4. RIZE [Concomitant]
     Indication: DRUG USE FOR UNKNOWN INDICATION
     Dosage: 10MG PER DAY
     Route: 048
     Dates: start: 20080901
  5. LENDORMIN [Concomitant]
     Route: 048
     Dates: start: 20080926, end: 20081219
  6. PURSENNID [Concomitant]
     Dosage: 24MG PER DAY
     Route: 048
     Dates: start: 20090724
  7. MEILAX [Concomitant]
     Dosage: 1MG PER DAY
     Route: 048
     Dates: start: 20090116

REACTIONS (4)
  - DYSGEUSIA [None]
  - INCREASED APPETITE [None]
  - INSOMNIA [None]
  - SOMNOLENCE [None]
